FAERS Safety Report 8702878 (Version 3)
Quarter: 2012Q4

REPORT INFORMATION
  Report Type: 
  Country: JP (occurrence: JP)
  Receive Date: 20120803
  Receipt Date: 20121227
  Transmission Date: 20130627
  Serious: Yes (Hospitalization, Other)
  Sender: FDA-Public Use
  Company Number: JP-UCBSA-062752

PATIENT
  Age: 29 Year
  Sex: Female

DRUGS (14)
  1. E KEPPRA [Suspect]
     Indication: EPILEPSY
     Route: 048
  2. E KEPPRA [Suspect]
     Indication: EPILEPSY
     Dosage: DAILY DOSE : 3000 MG
     Route: 048
     Dates: start: 201201, end: 2012
  3. E KEPPRA [Suspect]
     Indication: EPILEPSY
     Route: 048
     Dates: start: 20120210, end: 20120229
  4. E KEPPRA [Suspect]
     Indication: EPILEPSY
     Dosage: DAILY DOSE: 5500 MG
     Route: 048
     Dates: start: 20120301, end: 20120318
  5. PHENOBAL [Suspect]
     Indication: EPILEPSY
     Dosage: 150 MG/DAY
     Route: 048
  6. GABAPEN [Suspect]
     Indication: EPILEPSY
     Dosage: 999 MG/DAY
     Route: 048
  7. LAMICTAL [Suspect]
     Indication: EPILEPSY
     Dosage: 400 MG/ DAY
     Route: 048
  8. SERENACE [Suspect]
     Indication: EPILEPSY
     Dosage: DAILY DOSE: 10 MG
     Route: 048
  9. RISPERDAL [Suspect]
     Indication: EPILEPSY
     Dosage: DAILY DOSE: 9 ML
     Route: 048
  10. DIAPP [Concomitant]
     Dosage: 20 MG AS NECESSARY
     Route: 054
  11. GANATON [Concomitant]
     Indication: GASTROENTERITIS
     Dosage: DAILY DOSE: 150 MG
     Route: 048
  12. GASMOTIN [Concomitant]
     Indication: GASTROENTERITIS
     Dosage: DAILY DOSE: 15 MG
     Route: 048
  13. NAUZELIN [Concomitant]
     Indication: GASTROENTERITIS
     Dosage: DAILY DOSE: 20 MG
     Route: 048
  14. GASTER [Concomitant]
     Indication: GASTROENTERITIS
     Dosage: DAILY DOSE: 20 MG
     Route: 048

REACTIONS (6)
  - Gastrointestinal hypomotility [Recovering/Resolving]
  - Epilepsy [Unknown]
  - Decreased activity [Recovering/Resolving]
  - Weight decreased [Recovering/Resolving]
  - Hypersomnia [Recovering/Resolving]
  - Overdose [Unknown]
